FAERS Safety Report 19827962 (Version 1)
Quarter: 2021Q3

REPORT INFORMATION
  Report Type: Spontaneous
  Country: JP (occurrence: JP)
  Receive Date: 20210914
  Receipt Date: 20210914
  Transmission Date: 20211014
  Serious: Yes (Hospitalization)
  Sender: FDA-Public Use
  Company Number: JP-TEVA-2021-JP-1954526

PATIENT
  Age: 9 Decade
  Sex: Female

DRUGS (8)
  1. MADOPAR [Concomitant]
     Active Substance: BENSERAZIDE HYDROCHLORIDE\LEVODOPA
     Route: 065
  2. AZILECT [Suspect]
     Active Substance: RASAGILINE MESYLATE
     Indication: PARKINSON^S DISEASE
     Dosage: .5 MILLIGRAM DAILY;
     Route: 048
     Dates: start: 20180724
  3. VIVIANT [Concomitant]
     Active Substance: BAZEDOXIFENE
     Route: 065
  4. ROZEREM [Concomitant]
     Active Substance: RAMELTEON
     Route: 065
  5. THYRADIN [Concomitant]
     Active Substance: LEVOTHYROXINE
     Route: 065
  6. EDIROL [Concomitant]
     Active Substance: ELDECALCITOL
     Route: 065
  7. METLIGINE [Concomitant]
     Active Substance: MIDODRINE HYDROCHLORIDE
     Route: 065
  8. LENDORMIN [Concomitant]
     Active Substance: BROTIZOLAM
     Route: 065

REACTIONS (1)
  - Decreased appetite [Recovered/Resolved]

NARRATIVE: CASE EVENT DATE: 20181005
